FAERS Safety Report 10431556 (Version 3)
Quarter: 2014Q4

REPORT INFORMATION
  Report Type: Spontaneous
  Country: JP (occurrence: JP)
  Receive Date: 20140904
  Receipt Date: 20141125
  Transmission Date: 20150528
  Serious: Yes (Death, Life-Threatening, Other)
  Sender: FDA-Public Use
  Company Number: JP-PFIZER INC-2014244808

PATIENT
  Age: 91 Year
  Sex: Male
  Weight: 56 kg

DRUGS (4)
  1. RADICUT [Concomitant]
     Active Substance: EDARAVONE
     Indication: SUBARACHNOID HAEMORRHAGE
     Dosage: 30 MG, 2X/DAY
     Route: 042
     Dates: start: 20140610, end: 20140611
  2. FOSPHENYTOIN SODIUM. [Suspect]
     Active Substance: FOSPHENYTOIN SODIUM
     Dosage: 375 MGX1 (SINGLE USE)
     Route: 042
     Dates: start: 20140611, end: 20140611
  3. FOSPHENYTOIN SODIUM. [Suspect]
     Active Substance: FOSPHENYTOIN SODIUM
     Indication: SEIZURE
     Dosage: 900 MGX1 (SINGLE USE)
     Route: 042
     Dates: start: 20140610, end: 20140610
  4. PRECEDEX [Concomitant]
     Active Substance: DEXMEDETOMIDINE HYDROCHLORIDE
     Indication: RESTLESSNESS
     Dosage: 2 MG, QD PER AN HOUR
     Route: 042
     Dates: start: 20140610, end: 20140612

REACTIONS (4)
  - Hepatic failure [Fatal]
  - Bradycardia [Unknown]
  - Multi-organ failure [Fatal]
  - Cardiac arrest [Unknown]

NARRATIVE: CASE EVENT DATE: 20140610
